FAERS Safety Report 9060895 (Version 3)
Quarter: 2014Q4

REPORT INFORMATION
  Report Type: Report from Study
  Country: AR (occurrence: AR)
  Receive Date: 20130212
  Receipt Date: 20141029
  Transmission Date: 20150529
  Serious: Yes (Other)
  Sender: FDA-Public Use
  Company Number: AR-MERCK-1302ARG002488

PATIENT
  Age: 44 Year
  Sex: Female
  Weight: 69.8 kg

DRUGS (3)
  1. BENZNIDAZOLE [Suspect]
     Active Substance: BENZNIDAZOLE
     Indication: AMERICAN TRYPANOSOMIASIS
     Dosage: 200 MG, BID
     Route: 048
     Dates: start: 20120213, end: 20120410
  2. ENALAPRIL MALEATE. [Concomitant]
     Active Substance: ENALAPRIL MALEATE
     Indication: HYPERTENSION
     Dosage: 10 MG, QD
     Route: 048
     Dates: start: 20120120
  3. POSACONAZOLE [Suspect]
     Active Substance: POSACONAZOLE
     Indication: AMERICAN TRYPANOSOMIASIS
     Dosage: 400 MG, BID
     Route: 048
     Dates: start: 20120213, end: 20120410

REACTIONS (1)
  - Systemic lupus erythematosus [Recovering/Resolving]

NARRATIVE: CASE EVENT DATE: 20120820
